FAERS Safety Report 7826268-7 (Version None)
Quarter: 2011Q4

REPORT INFORMATION
  Report Type: 
  Country: None (occurrence: None)
  Receive Date: 20111020
  Receipt Date: 20111013
  Transmission Date: 20120403
  Serious: No
  Sender: FDA-Public Use
  Company Number: US-BIOGENIDEC-2011BI027025

PATIENT
  Age: 52 Year
  Sex: Female

DRUGS (3)
  1. TYSABRI [Suspect]
     Indication: MULTIPLE SCLEROSIS
     Route: 042
     Dates: start: 20110630
  2. AVONEX [Concomitant]
     Indication: MULTIPLE SCLEROSIS
     Route: 030
     Dates: start: 20100713
  3. TYSABRI [Suspect]
     Route: 042
     Dates: start: 20060915, end: 20091105

REACTIONS (8)
  - MUSCULAR WEAKNESS [None]
  - DRUG INEFFECTIVE [None]
  - FALL [None]
  - MALAISE [None]
  - GAIT DISTURBANCE [None]
  - FATIGUE [None]
  - APHTHOUS STOMATITIS [None]
  - MOTOR DYSFUNCTION [None]
